FAERS Safety Report 5303269-4 (Version None)
Quarter: 2007Q2

REPORT INFORMATION
  Report Type: 
  Country: None (occurrence: None)
  Receive Date: 20070420
  Receipt Date: 20070419
  Transmission Date: 20071010
  Serious: Yes (Hospitalization)
  Sender: FDA-Public Use
  Company Number: US-GLAXOSMITHKLINE-A0645260A

PATIENT
  Age: 55 Year
  Sex: Female
  Weight: 55.9 kg

DRUGS (4)
  1. LAPATINIB [Suspect]
     Dosage: 1000MG PER DAY
     Route: 048
     Dates: start: 20061110
  2. PACLITAXEL [Suspect]
     Dosage: 80MGM2 CYCLIC
     Route: 042
     Dates: start: 20061110
  3. TRASTUZUMAB [Suspect]
     Dosage: 2MGK WEEKLY
     Route: 042
     Dates: start: 20061110
  4. ZOLPIDEM [Concomitant]
     Route: 048
     Dates: start: 20070327

REACTIONS (1)
  - DEHYDRATION [None]
